FAERS Safety Report 13593696 (Version 1)
Quarter: 2017Q2

REPORT INFORMATION
  Report Type: Spontaneous
  Country: US (occurrence: US)
  Receive Date: 20170530
  Receipt Date: 20170530
  Transmission Date: 20170830
  Serious: Yes (Other)
  Sender: FDA-Public Use
  Company Number: US-CONCORDIA PHARMACEUTICALS INC.-GSH201705-002839

PATIENT
  Sex: Female

DRUGS (4)
  1. DIURESIS [Concomitant]
     Indication: CARDIAC FAILURE
  2. METOPROLOL. [Concomitant]
     Active Substance: METOPROLOL
     Indication: VENTRICULAR ARRHYTHMIA
  3. DIGOXIN. [Suspect]
     Active Substance: DIGOXIN
     Indication: VENTRICULAR ARRHYTHMIA
  4. DILTIAZEM. [Concomitant]
     Active Substance: DILTIAZEM
     Indication: VENTRICULAR ARRHYTHMIA

REACTIONS (9)
  - Mental status changes [Recovered/Resolved]
  - Vomiting [Recovered/Resolved]
  - Asthenia [Recovered/Resolved]
  - Depressed level of consciousness [Recovered/Resolved]
  - Nausea [Recovered/Resolved]
  - Visual impairment [Recovered/Resolved]
  - Diarrhoea [Recovered/Resolved]
  - Drug prescribing error [Unknown]
  - Toxicity to various agents [Unknown]
